FAERS Safety Report 7205648-7 (Version None)
Quarter: 2010Q4

REPORT INFORMATION
  Report Type: 
  Country: None (occurrence: None)
  Receive Date: 20101231
  Receipt Date: 20101227
  Transmission Date: 20110411
  Serious: Yes (Hospitalization)
  Sender: FDA-Public Use
  Company Number: US-AMGEN-USASP2010011775

PATIENT

DRUGS (2)
  1. ENBREL [Suspect]
     Indication: PSORIATIC ARTHROPATHY
     Dates: start: 20071022
  2. ENBREL [Suspect]
     Indication: PSORIASIS

REACTIONS (11)
  - ACARODERMATITIS [None]
  - BONE PAIN [None]
  - HYPOAESTHESIA [None]
  - INFECTION [None]
  - INJECTION SITE PAIN [None]
  - INJECTION SITE VESICLES [None]
  - JOINT SWELLING [None]
  - MOBILITY DECREASED [None]
  - SKIN INFECTION [None]
  - STREPTOCOCCAL INFECTION [None]
  - URINARY TRACT INFECTION [None]
